FAERS Safety Report 12659248 (Version 1)
Quarter: 2016Q3

REPORT INFORMATION
  Report Type: Report from Study
  Country: BR (occurrence: BR)
  Receive Date: 20160817
  Receipt Date: 20160817
  Transmission Date: 20161109
  Serious: Yes (Hospitalization)
  Sender: FDA-Public Use
  Company Number: PHHY2016BR111618

PATIENT
  Sex: Female
  Weight: 50 kg

DRUGS (1)
  1. EXELON [Suspect]
     Active Substance: RIVASTIGMINE TARTRATE
     Indication: DEMENTIA ALZHEIMER^S TYPE
     Dosage: 3 MG, BID
     Route: 048

REACTIONS (5)
  - Eating disorder [Unknown]
  - Senile dementia [Unknown]
  - Asthenia [Unknown]
  - Vomiting [Unknown]
  - Pneumonia [Unknown]
